FAERS Safety Report 9905023 (Version 1)
Quarter: 2014Q1

REPORT INFORMATION
  Report Type: Spontaneous
  Country: US (occurrence: US)
  Receive Date: 20140218
  Receipt Date: 20140218
  Transmission Date: 20141002
  Serious: No
  Sender: FDA-Public Use
  Company Number: US-GILEAD-2012-0049366

PATIENT
  Age: 43 Year
  Sex: Female

DRUGS (1)
  1. LETAIRIS [Suspect]
     Indication: PRODUCT USED FOR UNKNOWN INDICATION
     Dosage: 5 MG, UNK
     Route: 048
     Dates: start: 20111229

REACTIONS (4)
  - Muscle spasms [Unknown]
  - Sinus headache [Unknown]
  - Dyspnoea [Unknown]
  - Sinus congestion [Unknown]
